FAERS Safety Report 21092993 (Version 1)
Quarter: 2022Q3

REPORT INFORMATION
  Report Type: Report from Study
  Country: NL (occurrence: NL)
  Receive Date: 20220718
  Receipt Date: 20220718
  Transmission Date: 20221027
  Serious: Yes (Death)
  Sender: FDA-Public Use
  Company Number: NL-ABBVIE-22K-114-4470634-00

PATIENT
  Age: 82 Year
  Sex: Female
  Weight: 52 kg

DRUGS (5)
  1. CARBIDOPA\LEVODOPA [Suspect]
     Active Substance: CARBIDOPA\LEVODOPA
     Indication: Parkinson^s disease
     Dosage: MD: 12.5ML ; CD: 4.8ML/H; ED: 2.0ML?20 MG/ML 5 MG/ML
     Route: 050
     Dates: start: 20220107
  2. CARBIDOPA\LEVODOPA [Suspect]
     Active Substance: CARBIDOPA\LEVODOPA
  3. RIVASTIGMINE [Concomitant]
     Active Substance: RIVASTIGMINE
     Indication: Product used for unknown indication
  4. CLOZAPINE [Concomitant]
     Active Substance: CLOZAPINE
     Indication: Hallucination
  5. BENSERAZIDE HYDROCHLORIDE\LEVODOPA [Concomitant]
     Active Substance: BENSERAZIDE HYDROCHLORIDE\LEVODOPA
     Indication: Parkinson^s disease
     Dosage: AFTER THE PUMP HAS BEEN DISCONNECTED

REACTIONS (2)
  - Infection [Fatal]
  - Pneumonia [Fatal]
